FAERS Safety Report 10360551 (Version 2)
Quarter: 2015Q1

REPORT INFORMATION
  Report Type: Report from Study
  Country: DE (occurrence: DE)
  Receive Date: 20140804
  Receipt Date: 20150224
  Transmission Date: 20150720
  Serious: Yes (Death, Hospitalization)
  Sender: FDA-Public Use
  Company Number: DE-ABBVIE-14K-062-1267235-00

PATIENT
  Sex: Female

DRUGS (2)
  1. INFLIXIMAB [Suspect]
     Active Substance: INFLIXIMAB
     Indication: PRODUCT USED FOR UNKNOWN INDICATION
     Route: 065
     Dates: start: 201309, end: 201403
  2. HUMIRA [Suspect]
     Active Substance: ADALIMUMAB
     Indication: RHEUMATOID ARTHRITIS
     Route: 058
     Dates: start: 201011, end: 201103

REACTIONS (10)
  - Neuroendocrine carcinoma metastatic [Fatal]
  - Glioblastoma multiforme [Fatal]
  - Multi-organ failure [Fatal]
  - Post procedural haemorrhage [Fatal]
  - Subdural haematoma [Unknown]
  - Rash [Unknown]
  - Metastases to central nervous system [Fatal]
  - Coma [Unknown]
  - Diarrhoea [Unknown]
  - Aortic valve replacement [Recovered/Resolved]

NARRATIVE: CASE EVENT DATE: 2010
